FAERS Safety Report 4292840-7 (Version None)
Quarter: 2004Q1

REPORT INFORMATION
  Report Type: 
  Country: None (occurrence: None)
  Receive Date: 20040212
  Receipt Date: 20030714
  Transmission Date: 20041129
  Serious: No
  Sender: FDA-Public Use
  Company Number: US-GLAXOSMITHKLINE-A0416680A

PATIENT
  Age: 61 Year
  Sex: Female

DRUGS (3)
  1. PAXIL [Suspect]
     Indication: DEPRESSION
     Route: 048
  2. IMITREX [Concomitant]
  3. HORMONE REPLACEMENT THERAPY [Concomitant]

REACTIONS (3)
  - CRYING [None]
  - EMOTIONAL DISORDER [None]
  - INSOMNIA [None]
